FAERS Safety Report 5517682-3 (Version None)
Quarter: 2007Q4

REPORT INFORMATION
  Report Type: 
  Country: None (occurrence: None)
  Receive Date: 20071114
  Receipt Date: 20071019
  Transmission Date: 20080405
  Serious: No
  Sender: FDA-Public Use
  Company Number: US-BOEHRINGER INGELHEIM PHARMACEUTICALS, INC.-2007-BP-23137BP

PATIENT
  Sex: Male

DRUGS (2)
  1. FLOMAX [Suspect]
  2. AVODART [Suspect]

REACTIONS (2)
  - CONSTIPATION [None]
  - NASAL DRYNESS [None]
